FAERS Safety Report 23961416 (Version 3)
Quarter: 2024Q3

REPORT INFORMATION
  Report Type: Spontaneous
  Country: GB (occurrence: GB)
  Receive Date: 20240611
  Receipt Date: 20240807
  Transmission Date: 20241017
  Serious: Yes (Death, Hospitalization, Other)
  Sender: DR REDDYS
  Company Number: None

PATIENT
  Sex: Male

DRUGS (9)
  1. CAPECITABINE [Suspect]
     Active Substance: CAPECITABINE
     Indication: Pancreatic neuroendocrine tumour
     Dosage: TWICE DAILY/FIRST-LINE TREATMENT
  2. CAPECITABINE [Suspect]
     Active Substance: CAPECITABINE
     Indication: Acinar cell carcinoma of pancreas
  3. OLANZAPINE [Suspect]
     Active Substance: OLANZAPINE
     Indication: Product used for unknown indication
     Dosage: UNKNOWN
  4. TEMODAL [Suspect]
     Active Substance: TEMOZOLOMIDE
     Indication: Pancreatic neuroendocrine tumour
     Dosage: 630 MG, 2 DOSES
  5. TEMODAL [Suspect]
     Active Substance: TEMOZOLOMIDE
     Indication: Acinar cell carcinoma of pancreas
     Dosage: 250 MG?FIRST-LINE TREATMENT
  6. TEMODAL [Suspect]
     Active Substance: TEMOZOLOMIDE
     Indication: Psoas abscess
     Dosage: OVERDOSE OF TEMOZOLOMIDE (TEMODAL) OVER A TWO-DAY PERIOD (AT 640 MG IN TOTAL ON DAY ONE, AND 630 MG
  7. TEMODAL [Suspect]
     Active Substance: TEMOZOLOMIDE
     Indication: Myelosuppression
  8. TEMODAL [Suspect]
     Active Substance: TEMOZOLOMIDE
  9. PIPERACILLIN SODIUM\TAZOBACTAM SODIUM [Suspect]
     Active Substance: PIPERACILLIN SODIUM\TAZOBACTAM SODIUM
     Indication: Product used for unknown indication
     Dosage: UNK

REACTIONS (13)
  - Arrhythmia [Fatal]
  - Accidental overdose [Unknown]
  - Malignant neoplasm progression [Unknown]
  - Psoas abscess [Unknown]
  - Cardiotoxicity [Unknown]
  - Sepsis [Unknown]
  - Myelosuppression [Unknown]
  - Hypocalcaemia [Unknown]
  - Off label use [Unknown]
  - Electrolyte imbalance [Unknown]
  - Product administration error [Unknown]
  - Product prescribing issue [Unknown]
  - Product use in unapproved indication [Unknown]
